FAERS Safety Report 8221403-3 (Version None)
Quarter: 2012Q1

REPORT INFORMATION
  Report Type: 
  Country: None (occurrence: None)
  Receive Date: 20120320
  Receipt Date: 20120315
  Transmission Date: 20120608
  Serious: Yes (Death, Life-Threatening, Hospitalization, Other)
  Sender: FDA-Public Use
  Company Number: MX-SANOFI-AVENTIS-2012SA018202

PATIENT
  Age: 59 Year
  Sex: Male

DRUGS (7)
  1. ENDOCRINE THERAPY [Concomitant]
     Indication: PROSTATE CANCER
     Route: 042
     Dates: start: 20060101
  2. LEUPROLIDE ACETATE [Concomitant]
     Indication: PROSTATE CANCER
     Dosage: EVERY 3 MONTHS
     Route: 058
     Dates: start: 20060101
  3. ZOLEDRONOC ACID [Concomitant]
     Route: 042
     Dates: start: 20100101
  4. CASODEX [Concomitant]
     Indication: PROSTATE CANCER
     Route: 048
     Dates: start: 20060101
  5. CORTICOSTEROID NOS [Concomitant]
     Route: 065
     Dates: start: 20100101
  6. DOCETAXEL [Suspect]
     Indication: PROSTATE CANCER
     Route: 042
     Dates: start: 20110801, end: 20110926
  7. KETOCONAZOL ^GRUENENTHAL^ [Concomitant]
     Route: 065
     Dates: start: 20100101

REACTIONS (3)
  - DEATH [None]
  - PNEUMONITIS [None]
  - RESPIRATORY DISORDER [None]
